FAERS Safety Report 21168436 (Version 5)
Quarter: 2024Q1

REPORT INFORMATION
  Report Type: Spontaneous
  Country: US (occurrence: US)
  Receive Date: 20220803
  Receipt Date: 20240212
  Transmission Date: 20240409
  Serious: Yes (Hospitalization)
  Sender: FDA-Public Use
  Company Number: US-PFIZER INC-PV202200035957

PATIENT
  Age: 51 Year
  Sex: Female

DRUGS (13)
  1. XELJANZ XR [Suspect]
     Active Substance: TOFACITINIB CITRATE
     Indication: Psoriatic arthropathy
     Dosage: 11 MG, DAILY
     Route: 048
  2. XELJANZ XR [Suspect]
     Active Substance: TOFACITINIB CITRATE
     Indication: Rheumatoid arthritis
     Dosage: 11 MG, 1X/DAY
     Route: 048
  3. EPINEPHRINE [Concomitant]
     Active Substance: EPINEPHRINE
     Dosage: 0.3MG/0.3
  4. ATIVAN [Concomitant]
     Active Substance: LORAZEPAM
     Dosage: UNK
  5. PROZAC [Concomitant]
     Active Substance: FLUOXETINE HYDROCHLORIDE
     Dosage: UNK
  6. MAGNESIUM [Concomitant]
     Active Substance: MAGNESIUM
     Dosage: UNK
  7. VITAMIN K [Concomitant]
     Active Substance: PHYTONADIONE
     Dosage: UNK
  8. VITAMIN D3 [Concomitant]
     Active Substance: CHOLECALCIFEROL
     Dosage: UNK
  9. CALCIUM [Concomitant]
     Active Substance: CALCIUM
     Dosage: UNK
  10. FISH OIL [Concomitant]
     Active Substance: FISH OIL
     Dosage: UNK
  11. FOLIC ACID [Concomitant]
     Active Substance: FOLIC ACID
     Dosage: UNK
  12. EUTHYROX [Concomitant]
     Active Substance: LEVOTHYROXINE SODIUM
     Dosage: UNK
  13. MAXALT [Concomitant]
     Active Substance: RIZATRIPTAN BENZOATE
     Dosage: UNK

REACTIONS (5)
  - Small intestinal obstruction [Recovered/Resolved]
  - Therapeutic product effect incomplete [Unknown]
  - Product dose omission issue [Unknown]
  - Blood cholesterol increased [Not Recovered/Not Resolved]
  - Headache [Not Recovered/Not Resolved]

NARRATIVE: CASE EVENT DATE: 20220701
